FAERS Safety Report 17392967 (Version 1)
Quarter: 2020Q1

REPORT INFORMATION
  Report Type: Spontaneous
  Country: US (occurrence: US)
  Receive Date: 20200207
  Receipt Date: 20200207
  Transmission Date: 20200409
  Serious: No
  Sender: FDA-Public Use
  Company Number: US-SA-2020SA029614

PATIENT
  Sex: Female

DRUGS (4)
  1. NASACORT ALLERGY 24HR [Suspect]
     Active Substance: TRIAMCINOLONE ACETONIDE
     Dosage: 2 SPRAYS
     Route: 065
     Dates: start: 20200129
  2. CEFTRIAXONE. [Concomitant]
     Active Substance: CEFTRIAXONE
     Indication: RESPIRATORY DISORDER
     Dosage: UNK
     Dates: start: 20200117
  3. MEDROL [Concomitant]
     Active Substance: METHYLPREDNISOLONE
     Indication: WHEEZING
  4. MEDROL [Concomitant]
     Active Substance: METHYLPREDNISOLONE
     Indication: CHEST DISCOMFORT
     Dosage: UNK
     Dates: start: 20200123, end: 20200129

REACTIONS (2)
  - Feeling abnormal [Unknown]
  - Dyspnoea [Unknown]
